FAERS Safety Report 18683317 (Version 1)
Quarter: 2020Q4

REPORT INFORMATION
  Report Type: Spontaneous
  Country: US (occurrence: US)
  Receive Date: 20201230
  Receipt Date: 20201230
  Transmission Date: 20210114
  Serious: Yes (Hospitalization, Other)
  Sender: FDA-Public Use
  Company Number: US-BRISTOL-MYERS SQUIBB COMPANY-BMS-2020-111642

PATIENT
  Age: 60 Year
  Sex: Male

DRUGS (2)
  1. IPILIMUMAB [Suspect]
     Active Substance: IPILIMUMAB
     Indication: ACRAL LENTIGINOUS MELANOMA
     Dosage: FOUR CYCLES
     Route: 065
  2. NIVOLUMAB [Suspect]
     Active Substance: NIVOLUMAB
     Indication: ACRAL LENTIGINOUS MELANOMA
     Dosage: FOUR CYCLES
     Route: 065

REACTIONS (2)
  - Pancreatic injury [Unknown]
  - Jaundice cholestatic [Unknown]
